FAERS Safety Report 5315867-2 (Version None)
Quarter: 2007Q1

REPORT INFORMATION
  Report Type: 
  Country: None (occurrence: None)
  Receive Date: 20070130
  Receipt Date: 20061218
  Transmission Date: 20070707
  Serious: No
  Sender: FDA-Public Use
  Company Number: 200620158US

PATIENT
  Age: 39 Year
  Sex: Male
  Weight: 64 kg

DRUGS (1)
  1. KETEK [Suspect]
     Indication: BRONCHITIS
     Dosage: 800 MG QD PO
     Route: 048
     Dates: start: 20061212, end: 20061215

REACTIONS (4)
  - DIZZINESS [None]
  - FATIGUE [None]
  - NAUSEA [None]
  - VISION BLURRED [None]
